FAERS Safety Report 6977138-8 (Version None)
Quarter: 2010Q3

REPORT INFORMATION
  Report Type: 
  Country: None (occurrence: None)
  Receive Date: 20100910
  Receipt Date: 20100909
  Transmission Date: 20110219
  Serious: Yes (Hospitalization)
  Sender: FDA-Public Use
  Company Number: US-CEPHALON-2010004460

PATIENT
  Sex: Male

DRUGS (2)
  1. TREANDA [Suspect]
     Indication: LYMPHOCYTIC LEUKAEMIA
     Route: 042
     Dates: start: 20100413, end: 20100513
  2. RITUXIMAB [Concomitant]
     Indication: LYMPHOCYTIC LEUKAEMIA

REACTIONS (7)
  - ANAPHYLACTIC REACTION [None]
  - ATRIAL FIBRILLATION [None]
  - CHILLS [None]
  - HYPOTENSION [None]
  - HYPOXIA [None]
  - PYREXIA [None]
  - RENAL FAILURE [None]
